FAERS Safety Report 4339570-0 (Version None)
Quarter: 2004Q1

REPORT INFORMATION
  Report Type: 
  Country: None (occurrence: None)
  Receive Date: 20040329
  Receipt Date: 20040224
  Transmission Date: 20041129
  Serious: No
  Sender: FDA-Public Use
  Company Number: 04P-163-0251190-00

PATIENT
  Sex: Female

DRUGS (6)
  1. HUMIRA [Suspect]
     Indication: RHEUMATOID ARTHRITIS
     Dosage: 40 MG, 1 IN 2 WK, SUBCUTANEOUS
     Route: 058
     Dates: start: 20040101
  2. HYDROXYCHLOROQUINE PHOSPHATE [Concomitant]
  3. FLUOXETINE HCL [Concomitant]
  4. ANOVLAR [Concomitant]
  5. CALCIUM [Concomitant]
  6. METHYLIN ER [Concomitant]

REACTIONS (5)
  - COUGH [None]
  - HOT FLUSH [None]
  - INJECTION SITE BURNING [None]
  - NIGHT SWEATS [None]
  - SINUSITIS [None]
